FAERS Safety Report 8317720-9 (Version None)
Quarter: 2012Q2

REPORT INFORMATION
  Report Type: 
  Country: None (occurrence: None)
  Receive Date: 20120427
  Receipt Date: 20120418
  Transmission Date: 20120825
  Serious: Yes (Hospitalization)
  Sender: FDA-Public Use
  Company Number: HU-BRISTOL-MYERS SQUIBB COMPANY-16544553

PATIENT
  Age: 72 Year
  Sex: Female

DRUGS (2)
  1. HYDROCORTISONE [Concomitant]
     Indication: ADRENAL CARCINOMA
     Dates: start: 20110301
  2. LYSODREN [Suspect]
     Indication: ADRENAL CARCINOMA
     Dates: start: 20110501

REACTIONS (2)
  - DIZZINESS [None]
  - ASPHYXIA [None]
